FAERS Safety Report 22349517 (Version 1)
Quarter: 2023Q2

REPORT INFORMATION
  Report Type: Spontaneous
  Country: ES (occurrence: ES)
  Receive Date: 20230522
  Receipt Date: 20230522
  Transmission Date: 20230721
  Serious: Yes (Other)
  Sender: FDA-Public Use
  Company Number: ES-GUERBET/L. FARMACEUTICOS GUERBET-ES-20230026

PATIENT
  Age: 77 Year
  Sex: Male

DRUGS (1)
  1. IOVERSOL [Suspect]
     Active Substance: IOVERSOL
     Indication: Product used for unknown indication
     Route: 042

REACTIONS (1)
  - Sialoadenitis [Recovered/Resolved]
